FAERS Safety Report 4554075-X (Version None)
Quarter: 2005Q1

REPORT INFORMATION
  Report Type: 
  Country: None (occurrence: None)
  Receive Date: 20050113
  Receipt Date: 20050113
  Transmission Date: 20050727
  Serious: Yes (Life-Threatening, Disabling)
  Sender: FDA-Public Use
  Company Number: None

PATIENT
  Age: 48 Year
  Sex: Male
  Weight: 90 kg

DRUGS (2)
  1. HYDROCHLOROTHIAZIDE [Suspect]
     Indication: HYPERTENSION
     Dosage: 1 TBL 25 MG DAILY
  2. DILTIAZEM DC 180 MG [Suspect]
     Dosage: 180 MG DAILY

REACTIONS (9)
  - BLOOD PRESSURE INADEQUATELY CONTROLLED [None]
  - FATIGUE [None]
  - FEELING ABNORMAL [None]
  - HEPATIC PAIN [None]
  - JAUNDICE [None]
  - LIVER DISORDER [None]
  - NERVE COMPRESSION [None]
  - PERIPHERAL COLDNESS [None]
  - TREATMENT NONCOMPLIANCE [None]
